FAERS Safety Report 13009142 (Version 4)
Quarter: 2017Q4

REPORT INFORMATION
  Report Type: Spontaneous
  Country: JP (occurrence: JP)
  Receive Date: 20161208
  Receipt Date: 20171108
  Transmission Date: 20180320
  Serious: Yes (Hospitalization, Other)
  Sender: FDA-Public Use
  Company Number: JP-JNJFOC-20161206833

PATIENT
  Age: 81 Year
  Sex: Male
  Weight: 61 kg

DRUGS (12)
  1. CASODEX [Concomitant]
     Active Substance: BICALUTAMIDE
     Route: 048
     Dates: start: 20160901
  2. AMLODIN [Concomitant]
     Active Substance: AMLODIPINE BESYLATE
     Route: 048
     Dates: start: 20150527
  3. FEBURIC [Concomitant]
     Active Substance: FEBUXOSTAT
     Route: 048
     Dates: start: 20150527
  4. LEUPLIN [Concomitant]
     Active Substance: LEUPROLIDE ACETATE
     Route: 051
     Dates: start: 20160915
  5. CANAGLU [Suspect]
     Active Substance: CANAGLIFLOZIN
     Indication: TYPE 2 DIABETES MELLITUS
     Route: 048
     Dates: start: 20160805
  6. AZILVA [Concomitant]
     Active Substance: AZILSARTAN KAMEDOXOMIL
     Route: 048
     Dates: start: 20150527
  7. PRAZAXA [Concomitant]
     Active Substance: DABIGATRAN ETEXILATE MESYLATE
     Route: 048
     Dates: start: 20150527, end: 20170713
  8. TRAZENTA [Suspect]
     Active Substance: LINAGLIPTIN
     Indication: TYPE 2 DIABETES MELLITUS
     Route: 048
     Dates: start: 20160527, end: 20170629
  9. AZOSEMIDE [Suspect]
     Active Substance: AZOSEMIDE
     Indication: PRODUCT USED FOR UNKNOWN INDICATION
     Route: 048
     Dates: start: 20160527
  10. AZOSEMIDE [Suspect]
     Active Substance: AZOSEMIDE
     Indication: PRODUCT USED FOR UNKNOWN INDICATION
     Route: 048
     Dates: start: 20160714
  11. WARFARIN [Concomitant]
     Active Substance: WARFARIN
     Route: 065
     Dates: start: 20170818
  12. PRAZAXA [Concomitant]
     Active Substance: DABIGATRAN ETEXILATE MESYLATE
     Route: 048
     Dates: start: 20170714, end: 20170817

REACTIONS (10)
  - Cold sweat [Recovered/Resolved]
  - Weight decreased [Recovering/Resolving]
  - Ileus [Recovered/Resolved]
  - Pollakiuria [Recovering/Resolving]
  - Renal impairment [Not Recovered/Not Resolved]
  - Cardiac failure [Recovered/Resolved]
  - Feeling cold [Recovered/Resolved]
  - Melaena [Recovered/Resolved]
  - Heart rate increased [Recovering/Resolving]
  - Oedema peripheral [Recovering/Resolving]

NARRATIVE: CASE EVENT DATE: 2016
